FAERS Safety Report 4633856-8 (Version None)
Quarter: 2005Q2

REPORT INFORMATION
  Report Type: 
  Country: None (occurrence: None)
  Receive Date: 20050412
  Receipt Date: 20050412
  Transmission Date: 20051028
  Serious: No
  Sender: FDA-Public Use
  Company Number: None

PATIENT
  Sex: Female
  Weight: 72.7 kg

DRUGS (3)
  1. CISPLATIN [Suspect]
     Dates: start: 20050302
  2. ETOPOSIDE [Suspect]
     Dates: start: 20050302
  3. RADIATION THERAPY [Suspect]
     Dates: start: 20050302

REACTIONS (2)
  - DYSPHAGIA [None]
  - OESOPHAGITIS [None]
